FAERS Safety Report 4363668-4 (Version None)
Quarter: 2004Q2

REPORT INFORMATION
  Report Type: 
  Country: None (occurrence: None)
  Receive Date: 20040524
  Receipt Date: 20040524
  Transmission Date: 20050107
  Serious: No
  Sender: FDA-Public Use
  Company Number: None

PATIENT
  Sex: Female
  Weight: 25.9 kg

DRUGS (7)
  1. ZOSYN [Suspect]
     Indication: EMPYEMA
     Dosage: 2.25 GM EVERY 6 HO INTRAVENOUS
     Route: 042
     Dates: start: 20040501, end: 20040514
  2. ZOSYN [Suspect]
     Indication: PNEUMONIA BACTERIAL
     Dosage: 2.25 GM EVERY 6 HO INTRAVENOUS
     Route: 042
     Dates: start: 20040501, end: 20040514
  3. NYSTATIN [Concomitant]
  4. IBUPROFEN [Concomitant]
  5. POLYSPORIN [Concomitant]
  6. DEPAKOTE [Concomitant]
  7. ACETAMINOPHEN [Concomitant]

REACTIONS (2)
  - NEUTROPENIA [None]
  - PYREXIA [None]
